FAERS Safety Report 19715326 (Version 1)
Quarter: 2021Q3

REPORT INFORMATION
  Report Type: Spontaneous
  Country: US (occurrence: US)
  Receive Date: 20210818
  Receipt Date: 20210818
  Transmission Date: 20211014
  Serious: Yes (Hospitalization)
  Sender: FDA-Public Use
  Company Number: US-PFIZER INC-2020404401

PATIENT
  Age: 61 Year
  Sex: Female
  Weight: 63.5 kg

DRUGS (4)
  1. VALSARTAN. [Concomitant]
     Active Substance: VALSARTAN
     Dosage: 160 MG (DATE STARTED:15 YEARS )
  2. CYMBALTA [Concomitant]
     Active Substance: DULOXETINE HYDROCHLORIDE
     Dosage: 60 MG (DATE STARTED: 4 YEARS)
  3. XELJANZ XR [Suspect]
     Active Substance: TOFACITINIB CITRATE
     Indication: PSORIATIC ARTHROPATHY
     Dosage: 11 MG
  4. ROSUVASTIN [Concomitant]
     Active Substance: ROSUVASTATIN
     Dosage: 10 MG (DATE STARTED: 4 YEARS)

REACTIONS (3)
  - Lymphadenopathy [Recovered/Resolved]
  - Eye swelling [Recovered/Resolved]
  - Cellulitis orbital [Recovered/Resolved]

NARRATIVE: CASE EVENT DATE: 2021
